FAERS Safety Report 6244559-0 (Version None)
Quarter: 2009Q2

REPORT INFORMATION
  Report Type: 
  Country: None (occurrence: None)
  Receive Date: 20090625
  Receipt Date: 20090619
  Transmission Date: 20091009
  Serious: Yes (Other)
  Sender: FDA-Public Use
  Company Number: US-BAYER-200920365NA

PATIENT
  Age: 32 Year
  Sex: Female
  Weight: 68 kg

DRUGS (2)
  1. MIRENA [Suspect]
     Indication: CONTRACEPTION
     Dosage: CONTINUOUS
     Route: 015
     Dates: start: 20060522, end: 20090407
  2. CELEXA [Concomitant]
     Indication: DRUG USE FOR UNKNOWN INDICATION

REACTIONS (3)
  - GENITAL HAEMORRHAGE [None]
  - IUCD COMPLICATION [None]
  - IUD MIGRATION [None]
